FAERS Safety Report 5365684-2 (Version None)
Quarter: 2007Q2

REPORT INFORMATION
  Report Type: 
  Country: None (occurrence: None)
  Receive Date: 20070621
  Receipt Date: 20070608
  Transmission Date: 20071010
  Serious: Yes (Other)
  Sender: FDA-Public Use
  Company Number: FR-ELI_LILLY_AND_COMPANY-FR200601004524

PATIENT
  Age: 58 Year
  Sex: Female

DRUGS (3)
  1. FORTEO [Suspect]
     Indication: OSTEOPOROSIS
     Dosage: 20 UG, DAILY (1/D)
     Route: 058
     Dates: start: 20041105, end: 20060116
  2. ENDOTELON [Concomitant]
     Indication: OEDEMA PERIPHERAL
     Dosage: 2 D/F, DAILY (1/D)
     Route: 048
     Dates: start: 19880101
  3. ACETAMINOPHEN [Concomitant]
     Dosage: 4 D/F, DAILY (1/D)

REACTIONS (2)
  - INFLAMMATION [None]
  - SPINAL FRACTURE [None]
